FAERS Safety Report 12582175 (Version 1)
Quarter: 2016Q3

REPORT INFORMATION
  Report Type: Spontaneous
  Country: US (occurrence: None)
  Receive Date: 20160721
  Receipt Date: 20160721
  Transmission Date: 20161109
  Serious: Yes (Other)
  Sender: FDA-Public Use
  Company Number: None

PATIENT
  Age: 30 Year
  Sex: Male

DRUGS (1)
  1. ENOXAPARIN, 30 MG/0.3 ML FRESENIUS KABI USA [Suspect]
     Active Substance: ENOXAPARIN
     Indication: THROMBOSIS PROPHYLAXIS
     Route: 058
     Dates: start: 20160713, end: 20160713

REACTIONS (2)
  - Injury associated with device [None]
  - Needle issue [None]

NARRATIVE: CASE EVENT DATE: 20160713
